FAERS Safety Report 5961268-3 (Version None)
Quarter: 2008Q4

REPORT INFORMATION
  Report Type: 
  Country: None (occurrence: None)
  Receive Date: 20081119
  Receipt Date: 20081105
  Transmission Date: 20090506
  Serious: Yes (Other)
  Sender: FDA-Public Use
  Company Number: ENT 2008-0181

PATIENT
  Age: 76 Year
  Sex: Male

DRUGS (5)
  1. COMTAN [Suspect]
     Indication: DRUG EFFECT DECREASED
     Dosage: 150 MG (50 MG, 3 IN 1 D), ORAL
     Route: 048
     Dates: start: 20081016, end: 20081023
  2. CABASER [Concomitant]
  3. CARBIDOPA + LEVODOPA [Concomitant]
  4. SYMMETREL [Concomitant]
  5. ARTANE [Concomitant]

REACTIONS (3)
  - ALANINE AMINOTRANSFERASE INCREASED [None]
  - ASPARTATE AMINOTRANSFERASE INCREASED [None]
  - LIVER DISORDER [None]
